FAERS Safety Report 14730247 (Version 1)
Quarter: 2018Q2

REPORT INFORMATION
  Report Type: Report from Study
  Country: US (occurrence: US)
  Receive Date: 20180406
  Receipt Date: 20180406
  Transmission Date: 20180711
  Serious: Yes (Hospitalization)
  Sender: FDA-Public Use
  Company Number: US-ACTELION-A-NJ2017-152730

PATIENT
  Age: 66 Year
  Sex: Female

DRUGS (1)
  1. OPSUMIT [Suspect]
     Active Substance: MACITENTAN
     Indication: PULMONARY ARTERIAL HYPERTENSION
     Dosage: 10 MG, QD
     Route: 048
     Dates: start: 20150519

REACTIONS (9)
  - Weight decreased [Unknown]
  - Aspartate aminotransferase increased [Not Recovered/Not Resolved]
  - Oxygen consumption increased [Unknown]
  - Dyspnoea [Unknown]
  - Alanine aminotransferase increased [Not Recovered/Not Resolved]
  - Pericardial drainage [Unknown]
  - Unevaluable event [Unknown]
  - Hepatic enzyme increased [Not Recovered/Not Resolved]
  - Fluid retention [Unknown]

NARRATIVE: CASE EVENT DATE: 201703
